FAERS Safety Report 10404302 (Version 1)
Quarter: 2014Q1

REPORT INFORMATION
  Report Type: Spontaneous
  Country: US (occurrence: None)
  Receive Date: 20140214
  Receipt Date: 20140214
  Transmission Date: 20141002
  Serious: No
  Sender: FDA-Public Use
  Company Number: A-NJ2014-93806

PATIENT
  Age: 51 Year
  Sex: Female

DRUGS (1)
  1. OPSUMIT [Suspect]
     Indication: PRODUCT USED FOR UNKNOWN INDICATION
     Route: 048
     Dates: start: 20131129

REACTIONS (7)
  - Nasopharyngitis [None]
  - Gastrointestinal disorder [None]
  - Influenza like illness [None]
  - Lacrimation increased [None]
  - Nasal congestion [None]
  - Rhinorrhoea [None]
  - Cough [None]
